FAERS Safety Report 5033370-4 (Version None)
Quarter: 2006Q2

REPORT INFORMATION
  Report Type: 
  Country: None (occurrence: None)
  Receive Date: 20060515
  Receipt Date: 20060412
  Transmission Date: 20061013
  Serious: No
  Sender: FDA-Public Use
  Company Number: S06-USA-01461-01

PATIENT
  Age: 86 Year
  Sex: Female

DRUGS (9)
  1. NAMENDA [Suspect]
     Indication: MEMORY IMPAIRMENT
     Dosage: 10 MG BID PO
     Route: 048
     Dates: start: 20040421, end: 20040514
  2. NAMENDA [Suspect]
     Indication: MEMORY IMPAIRMENT
     Dosage: 5 MG QD PO
     Route: 048
     Dates: start: 20040331, end: 20040406
  3. NAMENDA [Suspect]
     Indication: MEMORY IMPAIRMENT
     Dosage: 5 MG BID PO
     Route: 048
     Dates: start: 20040407, end: 20040413
  4. NAMENDA [Suspect]
     Indication: MEMORY IMPAIRMENT
     Dosage: 15 MG QD PO
     Route: 048
     Dates: start: 20040414, end: 20040420
  5. ARICEPT [Concomitant]
  6. VERAPAMIL [Concomitant]
  7. BENICAR HCT (OLMESARTAN/HYDROCHLOROTHIAZIDE) [Concomitant]
  8. ALLEGRA [Concomitant]
  9. NASACORT [Concomitant]

REACTIONS (6)
  - AGITATION [None]
  - BLOOD PRESSURE INCREASED [None]
  - DIZZINESS [None]
  - FEELING ABNORMAL [None]
  - INSOMNIA [None]
  - PALPITATIONS [None]
